FAERS Safety Report 16040186 (Version 1)
Quarter: 2019Q2

REPORT INFORMATION
  Report Type: Spontaneous
  Country: US (occurrence: US)
  Receive Date: 20190305
  Receipt Date: 20190305
  Transmission Date: 20190711
  Serious: Yes (Disabling, Other)
  Sender: FDA-Public Use
  Company Number: None

PATIENT
  Age: 55 Year
  Sex: Female
  Weight: 74.25 kg

DRUGS (2)
  1. 1 MG CLONAZEPAM [Suspect]
     Active Substance: CLONAZEPAM
     Indication: POST-TRAUMATIC STRESS DISORDER
     Dosage: ?          QUANTITY:60 TABLET(S);?
     Route: 048
     Dates: start: 20190227, end: 20190304
  2. 1 MG CLONAZEPAM [Suspect]
     Active Substance: CLONAZEPAM
     Indication: ANXIETY
     Dosage: ?          QUANTITY:60 TABLET(S);?
     Route: 048
     Dates: start: 20190227, end: 20190304

REACTIONS (8)
  - Flatulence [None]
  - Headache [None]
  - Abdominal pain upper [None]
  - Product substitution issue [None]
  - Feeling abnormal [None]
  - Constipation [None]
  - Influenza like illness [None]
  - Vomiting [None]

NARRATIVE: CASE EVENT DATE: 20190227
